FAERS Safety Report 12988580 (Version 1)
Quarter: 2016Q4

REPORT INFORMATION
  Report Type: Spontaneous
  Country: US (occurrence: US)
  Receive Date: 20161130
  Receipt Date: 20161130
  Transmission Date: 20170207
  Serious: No
  Sender: FDA-Public Use
  Company Number: US-ALLERGAN-1000084669

PATIENT
  Sex: Male

DRUGS (1)
  1. NAMENDA [Suspect]
     Active Substance: MEMANTINE HYDROCHLORIDE
     Dosage: UNK

REACTIONS (4)
  - Hostility [Unknown]
  - Dizziness [Unknown]
  - Vertigo [Unknown]
  - Micturition urgency [Unknown]
